FAERS Safety Report 6187151-9 (Version None)
Quarter: 2009Q2

REPORT INFORMATION
  Report Type: 
  Country: None (occurrence: None)
  Receive Date: 20090507
  Receipt Date: 20090209
  Transmission Date: 20091009
  Serious: Yes (Hospitalization)
  Sender: FDA-Public Use
  Company Number: 613559

PATIENT
  Age: 47 Year
  Sex: Female

DRUGS (4)
  1. NAPROXEN [Suspect]
     Indication: PAIN IN EXTREMITY
     Dates: end: 20080901
  2. ALEVE [Suspect]
     Indication: PAIN IN EXTREMITY
     Dates: end: 20080901
  3. IBUPROFEN [Suspect]
     Indication: PAIN IN EXTREMITY
     Dates: end: 20080901
  4. REBIF [Suspect]
     Indication: MULTIPLE SCLEROSIS
     Dosage: 44 UG 3 PER 1 WEEK SUBCUTANEOUS
     Route: 058
     Dates: start: 20080716

REACTIONS (1)
  - GASTRIC ULCER HAEMORRHAGE [None]
